FAERS Safety Report 18513877 (Version 1)
Quarter: 2020Q4

REPORT INFORMATION
  Report Type: Spontaneous
  Country: US (occurrence: US)
  Receive Date: 20201118
  Receipt Date: 20201118
  Transmission Date: 20210114
  Serious: Yes (Hospitalization, Other)
  Sender: FDA-Public Use
  Company Number: US-LEADINGPHARMA-US-2020LEALIT00163

PATIENT
  Age: 23 Year
  Sex: Female

DRUGS (6)
  1. MAGNESIUM [Interacting]
     Active Substance: MAGNESIUM
     Route: 065
  2. HYDRALAZINE [Interacting]
     Active Substance: HYDRALAZINE HYDROCHLORIDE
     Indication: HYPERTENSION
     Dosage: THREE DOSES
     Route: 042
  3. NICARDIPINE [Interacting]
     Active Substance: NICARDIPINE
     Indication: HYPERTENSION
     Route: 041
  4. LABETALOL [Suspect]
     Active Substance: LABETALOL\LABETALOL HYDROCHLORIDE
     Indication: PRE-ECLAMPSIA
     Route: 065
  5. MAGNESIUM [Interacting]
     Active Substance: MAGNESIUM
     Indication: SEIZURE
     Route: 042
  6. NIFEDIPINE CAPSULES USP [Suspect]
     Active Substance: NIFEDIPINE
     Indication: PRE-ECLAMPSIA
     Route: 065

REACTIONS (4)
  - Withdrawal hypertension [Recovered/Resolved]
  - Posterior reversible encephalopathy syndrome [Recovered/Resolved]
  - Eclampsia [Recovered/Resolved]
  - Acute kidney injury [Recovering/Resolving]
